FAERS Safety Report 7330885-0 (Version None)
Quarter: 2011Q1

REPORT INFORMATION
  Report Type: 
  Country: None (occurrence: None)
  Receive Date: 20110304
  Receipt Date: 20110224
  Transmission Date: 20110831
  Serious: Yes (Other)
  Sender: FDA-Public Use
  Company Number: US-RB-011912-10

PATIENT
  Age: 30 Year
  Sex: Male

DRUGS (2)
  1. SUBUTEX [Suspect]
     Indication: DRUG DEPENDENCE
     Dosage: DOSE WAS TAPERED FROM 8 MG TO 2 MG
     Route: 060
  2. SUBOXONE [Suspect]
     Indication: DRUG DEPENDENCE
     Route: 060
     Dates: start: 20100601

REACTIONS (7)
  - PARANOIA [None]
  - IRRITABILITY [None]
  - ANXIETY [None]
  - PAIN [None]
  - VOMITING [None]
  - INTENTIONAL DRUG MISUSE [None]
  - CONSTIPATION [None]
